FAERS Safety Report 7285516-5 (Version None)
Quarter: 2011Q1

REPORT INFORMATION
  Report Type: 
  Country: None (occurrence: None)
  Receive Date: 20110131
  Receipt Date: 20110114
  Transmission Date: 20110831
  Serious: Yes (Other)
  Sender: FDA-Public Use
  Company Number: 2011SP002572

PATIENT
  Sex: Female

DRUGS (2)
  1. PEG-INTRON [Suspect]
     Indication: HEPATITIS
     Dates: start: 20101022
  2. RIBASPHERE [Suspect]
     Indication: HEPATITIS

REACTIONS (7)
  - FATIGUE [None]
  - DYSPNOEA [None]
  - SPINAL FUSION SURGERY [None]
  - MUSCULAR WEAKNESS [None]
  - PALPITATIONS [None]
  - PAIN IN EXTREMITY [None]
  - HAEMOGLOBIN DECREASED [None]
